FAERS Safety Report 20810737 (Version 3)
Quarter: 2022Q4

REPORT INFORMATION
  Report Type: Spontaneous
  Country: US (occurrence: US)
  Receive Date: 20220510
  Receipt Date: 20221202
  Transmission Date: 20230112
  Serious: No
  Sender: FDA-Public Use
  Company Number: US-PFIZER INC-202200629600

PATIENT
  Age: 69 Year
  Sex: Female

DRUGS (1)
  1. EUCRISA [Suspect]
     Active Substance: CRISABOROLE
     Dosage: 1 G, 2X/DAY (60-G TUBE, 30-DAY SUPPLY, ON THE SKIN, APPLY TO BOTH ARMS)
     Route: 061

REACTIONS (1)
  - Condition aggravated [Unknown]
